FAERS Safety Report 17720823 (Version 1)
Quarter: 2020Q2

REPORT INFORMATION
  Report Type: Spontaneous
  Country: CZ (occurrence: CZ)
  Receive Date: 20200428
  Receipt Date: 20200428
  Transmission Date: 20200714
  Serious: Yes (Hospitalization, Other)
  Sender: FDA-Public Use
  Company Number: CZ-AUROBINDO-AUR-APL-2020-020503

PATIENT
  Sex: Female

DRUGS (7)
  1. RAMIPRIL. [Suspect]
     Active Substance: RAMIPRIL
     Dosage: 2.5 MILLIGRAM, ONCE A DAY
     Route: 065
  2. RAMIPRIL. [Suspect]
     Active Substance: RAMIPRIL
     Indication: PRODUCT USED FOR UNKNOWN INDICATION
     Dosage: 5 MILLIGRAM, ONCE A DAY
     Route: 065
  3. THIOCTACID [Concomitant]
     Active Substance: .ALPHA.-LIPOIC ACID
     Indication: NEUROPATHY PERIPHERAL
     Dosage: UNK
     Route: 065
  4. INSULIN [Concomitant]
     Active Substance: INSULIN NOS
     Indication: PRODUCT USED FOR UNKNOWN INDICATION
     Dosage: UNK, ONCE A DAY (42 UNK, QD (UNITS))
     Route: 065
  5. THIOCTACID [Concomitant]
     Active Substance: .ALPHA.-LIPOIC ACID
     Dosage: UNK (ANOTHER SERIES)
     Route: 065
     Dates: start: 2017
  6. LEVOTHYROXINE. [Concomitant]
     Active Substance: LEVOTHYROXINE
     Indication: PRODUCT USED FOR UNKNOWN INDICATION
     Dosage: 50 MICROGRAM
     Route: 065
  7. LEVOTHYROXINE. [Concomitant]
     Active Substance: LEVOTHYROXINE
     Dosage: 125 MICROGRAM
     Route: 065

REACTIONS (10)
  - Proteinuria [Unknown]
  - Blindness [Unknown]
  - Dupuytren^s contracture [Unknown]
  - Diabetic cheiroarthropathy [Unknown]
  - Diabetic metabolic decompensation [Unknown]
  - Gastritis [Unknown]
  - Arthralgia [Unknown]
  - Oligoarthritis [Unknown]
  - Cataract [Unknown]
  - Tenosynovitis [Unknown]

NARRATIVE: CASE EVENT DATE: 201302
